FAERS Safety Report 5493144-7 (Version None)
Quarter: 2007Q4

REPORT INFORMATION
  Report Type: 
  Country: None (occurrence: None)
  Receive Date: 20071023
  Receipt Date: 20071010
  Transmission Date: 20080405
  Serious: Yes (Hospitalization)
  Sender: FDA-Public Use
  Company Number: US-AMGEN-STX237932

PATIENT
  Sex: Male

DRUGS (4)
  1. ENBREL [Suspect]
     Indication: PSORIASIS
     Route: 058
     Dates: start: 20040101, end: 20070401
  2. ENBREL [Suspect]
     Indication: PSORIATIC ARTHROPATHY
  3. BETAMETHASONE DIPROPIONATE [Concomitant]
     Route: 061
     Dates: start: 20050201
  4. CALCIPOTRIENE [Concomitant]
     Route: 061
     Dates: start: 20070201

REACTIONS (1)
  - COLONIC FISTULA [None]
